FAERS Safety Report 4472946-X (Version None)
Quarter: 2004Q4

REPORT INFORMATION
  Report Type: 
  Country: None (occurrence: None)
  Receive Date: 20041012
  Receipt Date: 20041012
  Transmission Date: 20050328
  Serious: Yes (Hospitalization)
  Sender: FDA-Public Use
  Company Number: None

PATIENT
  Age: 75 Year
  Sex: Male
  Weight: 59.8 kg

DRUGS (1)
  1. FENTANYL [Suspect]
     Indication: POSTOPERATIVE CARE
     Dosage: 2500 MCG, TITRATE, INTRAVEN
     Route: 042
     Dates: start: 20040709, end: 20040709

REACTIONS (1)
  - URTICARIA [None]
